FAERS Safety Report 18380445 (Version 3)
Quarter: 2021Q1

REPORT INFORMATION
  Report Type: Spontaneous
  Country: DE (occurrence: DE)
  Receive Date: 20201013
  Receipt Date: 20210105
  Transmission Date: 20210419
  Serious: Yes (Other)
  Sender: FDA-Public Use
  Company Number: DE-ROCHE-2693625

PATIENT
  Age: 54 Year
  Sex: Female

DRUGS (4)
  1. OCREVUS [Suspect]
     Active Substance: OCRELIZUMAB
     Indication: MULTIPLE SCLEROSIS
     Dosage: THIRD AND FOURTH INFUSION
     Route: 042
     Dates: start: 201812
  2. VARILRIX [Concomitant]
     Active Substance: VARICELLA-ZOSTER VIRUS STRAIN OKA/MERCK LIVE ANTIGEN
     Dosage: VARICELLA ZOSTER VIRUS LIVE VACCINE, 1ST ADMINISTRATION AND 2ND ADMINISTRATION
     Dates: start: 2018
  3. SHINGRIX [Concomitant]
     Active Substance: RECOMBINANT VARICELLA ZOSTER VIRUS (VZV) GLYCOPROTEIN E
     Dosage: EITHER BEFORE ??2018 OR IN ??2018?2ND ADMINISTRATION AND 3RD ADMINISTRATION
  4. VARILRIX [Concomitant]
     Active Substance: VARICELLA-ZOSTER VIRUS STRAIN OKA/MERCK LIVE ANTIGEN
     Dosage: VARICELLA ZOSTER VIRUS LIVE VACCINE, 2ND ADMINISTRATION
     Dates: start: 2018

REACTIONS (1)
  - Varicella zoster virus infection [Unknown]

NARRATIVE: CASE EVENT DATE: 201912
